FAERS Safety Report 14588288 (Version 2)
Quarter: 2018Q1

REPORT INFORMATION
  Report Type: Spontaneous
  Country: US (occurrence: US)
  Receive Date: 20180301
  Receipt Date: 20180308
  Transmission Date: 20180509
  Serious: Yes (Hospitalization, Other)
  Sender: FDA-Public Use
  Company Number: US-UNITED THERAPEUTICS-UNT-2018-002072

PATIENT
  Age: 66 Year
  Sex: Female
  Weight: 112.2 kg

DRUGS (4)
  1. CIPRO [Suspect]
     Active Substance: CIPROFLOXACIN HYDROCHLORIDE
     Indication: PRODUCT USED FOR UNKNOWN INDICATION
     Dosage: UNK
     Route: 048
  2. REMODULIN [Suspect]
     Active Substance: TREPROSTINIL
     Indication: PULMONARY HYPERTENSION
     Dosage: 0.04 ?G/KG, CONTINUING
     Route: 041
     Dates: start: 20160406
  3. REMODULIN [Suspect]
     Active Substance: TREPROSTINIL
     Indication: PULMONARY ARTERIAL HYPERTENSION
  4. FORTAZ [Suspect]
     Active Substance: CEFTAZIDIME SODIUM
     Indication: PRODUCT USED FOR UNKNOWN INDICATION
     Dosage: UNK
     Route: 042

REACTIONS (4)
  - Device related infection [Unknown]
  - Rash generalised [Unknown]
  - Pseudomonal bacteraemia [Unknown]
  - Influenza [Unknown]

NARRATIVE: CASE EVENT DATE: 20180212
